FAERS Safety Report 13647959 (Version 1)
Quarter: 2017Q2

REPORT INFORMATION
  Report Type: Spontaneous
  Country: CA (occurrence: CA)
  Receive Date: 20170613
  Receipt Date: 20170613
  Transmission Date: 20170830
  Serious: Yes (Hospitalization, Other)
  Sender: FDA-Public Use
  Company Number: CA-PFIZER INC-2017252692

PATIENT
  Age: 43 Year
  Sex: Male

DRUGS (1)
  1. XALKORI [Suspect]
     Active Substance: CRIZOTINIB
     Indication: NON-SMALL CELL LUNG CANCER STAGE 0
     Dosage: UNK

REACTIONS (4)
  - Swelling [Unknown]
  - Bile duct obstruction [Unknown]
  - Jaundice [Unknown]
  - Neoplasm progression [Unknown]
